FAERS Safety Report 5498258-3 (Version None)
Quarter: 2007Q4

REPORT INFORMATION
  Report Type: 
  Country: None (occurrence: None)
  Receive Date: 20071025
  Receipt Date: 20070420
  Transmission Date: 20080405
  Serious: No
  Sender: FDA-Public Use
  Company Number: A0648192A

PATIENT
  Age: 60 Year
  Sex: Male

DRUGS (8)
  1. ADVAIR DISKUS 100/50 [Suspect]
     Indication: ASTHMA
     Route: 055
     Dates: start: 20061001
  2. CADUET [Concomitant]
  3. DIGITEK [Concomitant]
  4. ENALAPRIL MALEATE [Concomitant]
  5. THIAMINE HCL [Concomitant]
  6. CHANTIX [Concomitant]
  7. INHALER [Concomitant]
  8. VITAMIN B-12 [Concomitant]

REACTIONS (3)
  - BACK PAIN [None]
  - DRUG INEFFECTIVE [None]
  - DYSPNOEA [None]
